FAERS Safety Report 6883040-2 (Version None)
Quarter: 2010Q3

REPORT INFORMATION
  Report Type: 
  Country: None (occurrence: None)
  Receive Date: 20100729
  Receipt Date: 20100721
  Transmission Date: 20110219
  Serious: Yes (Hospitalization, Other)
  Sender: FDA-Public Use
  Company Number: US-B.I. PHARMACEUTICALS,INC./RIDGEFIELD-2010-BP-07298BP

PATIENT
  Age: 64 Year
  Sex: Female

DRUGS (3)
  1. MICARDIS [Suspect]
     Indication: HYPERTENSION
     Dosage: 80 MG
     Route: 048
     Dates: start: 20070101, end: 20100301
  2. SYNTHROID [Concomitant]
     Indication: BASEDOW'S DISEASE
  3. AMLODIPINE [Concomitant]
     Indication: HYPERTENSION

REACTIONS (3)
  - BACTERIAL TEST [None]
  - HAEMATURIA [None]
  - RENAL FAILURE [None]
